FAERS Safety Report 13832143 (Version 1)
Quarter: 2017Q3

REPORT INFORMATION
  Report Type: Spontaneous
  Country: US (occurrence: US)
  Receive Date: 20170803
  Receipt Date: 20170803
  Transmission Date: 20171127
  Serious: No
  Sender: FDA-Public Use
  Company Number: US-ROCHE-697564

PATIENT
  Age: 46 Year
  Sex: Female
  Weight: 52.2 kg

DRUGS (4)
  1. LEVOXYL [Concomitant]
     Active Substance: LEVOTHYROXINE SODIUM
     Route: 065
  2. BONIVA [Suspect]
     Active Substance: IBANDRONATE SODIUM
     Indication: OSTEOPENIA
     Route: 048
     Dates: start: 20100301, end: 20100402
  3. FEMARA [Concomitant]
     Active Substance: LETROZOLE
     Route: 065
  4. DYAZIDE [Concomitant]
     Active Substance: HYDROCHLOROTHIAZIDE\TRIAMTERENE
     Route: 065

REACTIONS (3)
  - Supraventricular extrasystoles [Recovering/Resolving]
  - Dyspnoea [Unknown]
  - Myalgia [Recovered/Resolved]
